FAERS Safety Report 15247736 (Version 3)
Quarter: 2018Q3

REPORT INFORMATION
  Report Type: Spontaneous
  Country: US (occurrence: US)
  Receive Date: 20180807
  Receipt Date: 20180905
  Transmission Date: 20181010
  Serious: No
  Sender: FDA-Public Use
  Company Number: US-BIOGEN-2018BI00617444

PATIENT
  Sex: Male

DRUGS (1)
  1. AVONEX [Suspect]
     Active Substance: INTERFERON BETA-1A
     Indication: PRODUCT USED FOR UNKNOWN INDICATION
     Route: 065
     Dates: start: 20170213

REACTIONS (6)
  - Accidental underdose [Unknown]
  - Pain [Unknown]
  - Pain in extremity [Unknown]
  - Injury associated with device [Unknown]
  - Injection site pain [Unknown]
  - Injection site haemorrhage [Unknown]
